FAERS Safety Report 17568280 (Version 1)
Quarter: 2020Q1

REPORT INFORMATION
  Report Type: Spontaneous
  Country: US (occurrence: US)
  Receive Date: 20200320
  Receipt Date: 20200320
  Transmission Date: 20200409
  Serious: No
  Sender: FDA-Public Use
  Company Number: US-B.I. PHARMACEUTICALS,INC./RIDGEFIELD-2020-BI-014210

PATIENT
  Sex: Female
  Weight: 58 kg

DRUGS (6)
  1. XADAGO [Concomitant]
     Active Substance: SAFINAMIDE MESYLATE
     Indication: PRODUCT USED FOR UNKNOWN INDICATION
     Route: 065
  2. GOCOVRI [Suspect]
     Active Substance: AMANTADINE
     Dosage: 1/DAY AT BEDTIME
     Route: 048
     Dates: start: 20200212
  3. MIRAPEX [Suspect]
     Active Substance: PRAMIPEXOLE DIHYDROCHLORIDE
     Indication: PRODUCT USED FOR UNKNOWN INDICATION
     Route: 065
  4. GOCOVRI [Suspect]
     Active Substance: AMANTADINE
     Dosage: 1/DAY AT BEDTIME
     Route: 048
     Dates: start: 202001, end: 20200211
  5. RYTARY [Concomitant]
     Active Substance: CARBIDOPA\LEVODOPA
     Indication: PRODUCT USED FOR UNKNOWN INDICATION
     Route: 065
  6. GOCOVRI [Suspect]
     Active Substance: AMANTADINE
     Indication: DYSKINESIA
     Dosage: 1/DAY AT BEDTIME
     Dates: start: 202001

REACTIONS (5)
  - Gait disturbance [Recovered/Resolved]
  - Musculoskeletal stiffness [Recovered/Resolved]
  - Gait disturbance [Unknown]
  - Fall [Unknown]
  - Musculoskeletal stiffness [Unknown]
